FAERS Safety Report 18016254 (Version 2)
Quarter: 2020Q4

REPORT INFORMATION
  Report Type: Spontaneous
  Country: JP (occurrence: JP)
  Receive Date: 20200713
  Receipt Date: 20201125
  Transmission Date: 20210113
  Serious: Yes (Hospitalization)
  Sender: FDA-Public Use
  Company Number: JP-ELI_LILLY_AND_COMPANY-JP202007003297

PATIENT
  Age: 2 Year
  Sex: Female
  Weight: 8.4 kg

DRUGS (24)
  1. UPTRAVI [Suspect]
     Active Substance: SELEXIPAG
     Dosage: 0.9 MG, DAILY
     Route: 048
     Dates: start: 20180719, end: 20180723
  2. UPTRAVI [Suspect]
     Active Substance: SELEXIPAG
     Dosage: 1.1 MG, DAILY
     Route: 048
     Dates: start: 20181103, end: 20181220
  3. PIMOBENDAN [Concomitant]
     Active Substance: PIMOBENDAN
     Dosage: UNK
     Dates: start: 20180625
  4. ENALART [Concomitant]
     Active Substance: ENALAPRIL MALEATE
     Indication: PRODUCT USED FOR UNKNOWN INDICATION
     Dosage: 1 MG, DAILY
     Dates: start: 20180621, end: 20180625
  5. UPTRAVI [Suspect]
     Active Substance: SELEXIPAG
     Dosage: 0.4 MG, DAILY
     Route: 048
     Dates: start: 20180629, end: 20180702
  6. UPTRAVI [Suspect]
     Active Substance: SELEXIPAG
     Dosage: 0.6 MG, DAILY
     Route: 048
     Dates: start: 20180704, end: 20180710
  7. WARFARIN K [Concomitant]
     Active Substance: WARFARIN POTASSIUM
     Dosage: UNK
     Dates: start: 20181017
  8. ADCIRCA [Suspect]
     Active Substance: TADALAFIL
     Indication: PULMONARY ARTERIAL HYPERTENSION
     Dosage: 10 MG, DAILY
     Route: 065
     Dates: start: 20180616
  9. UPTRAVI [Suspect]
     Active Substance: SELEXIPAG
     Indication: PRODUCT USED FOR UNKNOWN INDICATION
     Dosage: 0.2 MG, DAILY
     Route: 048
     Dates: start: 20180623, end: 20180628
  10. UPTRAVI [Suspect]
     Active Substance: SELEXIPAG
     Dosage: 0.8 MG, DAILY
     Route: 048
     Dates: start: 20180715, end: 20180718
  11. UPTRAVI [Suspect]
     Active Substance: SELEXIPAG
     Dosage: 0.7 MG, DAILY
     Route: 048
     Dates: start: 20180711, end: 20180714
  12. UPTRAVI [Suspect]
     Active Substance: SELEXIPAG
     Dosage: 0.5 MG, DAILY
     Route: 048
     Dates: start: 20180703, end: 20180703
  13. UPTRAVI [Suspect]
     Active Substance: SELEXIPAG
     Dosage: 1.2 MG, DAILY
     Route: 048
     Dates: start: 20181221
  14. OPSUMIT [Concomitant]
     Active Substance: MACITENTAN
     Indication: PULMONARY ARTERIAL HYPERTENSION
     Dosage: UNK
     Dates: start: 20180615
  15. ENALART [Concomitant]
     Active Substance: ENALAPRIL MALEATE
     Dosage: UNK
     Dates: start: 20181020
  16. DORNER [Concomitant]
     Active Substance: BERAPROST SODIUM
     Indication: PULMONARY ARTERIAL HYPERTENSION
     Dosage: 18 UG, DAILY
     Dates: start: 20180614, end: 20180623
  17. WARFARIN K [Concomitant]
     Active Substance: WARFARIN POTASSIUM
     Indication: PRODUCT USED FOR UNKNOWN INDICATION
     Dosage: UNK
     Dates: start: 20180622, end: 20181016
  18. HYDROCHLOROTHIAZIDE. [Concomitant]
     Active Substance: HYDROCHLOROTHIAZIDE
     Indication: PRODUCT USED FOR UNKNOWN INDICATION
     Dosage: 10 MG, DAILY
     Dates: start: 20180703, end: 20180711
  19. ARTIST [Concomitant]
     Active Substance: CARVEDILOL
     Indication: PRODUCT USED FOR UNKNOWN INDICATION
     Dosage: UNK
     Dates: start: 20180621
  20. UPTRAVI [Suspect]
     Active Substance: SELEXIPAG
     Dosage: 1 MG, DAILY
     Route: 048
     Dates: start: 20180724, end: 20181102
  21. MIDAZOLAM. [Concomitant]
     Active Substance: MIDAZOLAM
     Indication: ANAESTHETIC PREMEDICATION
     Dosage: UNK UNK, UNKNOWN
     Route: 065
     Dates: start: 20181031, end: 20181031
  22. PIMOBENDAN [Concomitant]
     Active Substance: PIMOBENDAN
     Indication: PRODUCT USED FOR UNKNOWN INDICATION
     Dosage: 0.6 MG, DAILY
     Dates: start: 20180621, end: 20180623
  23. ASPIRIN [ACETYLSALICYLIC ACID] [Concomitant]
     Active Substance: ASPIRIN
     Indication: PRODUCT USED FOR UNKNOWN INDICATION
     Dosage: UNK
     Dates: start: 20180624
  24. ENALART [Concomitant]
     Active Substance: ENALAPRIL MALEATE
     Dosage: UNK
     Dates: start: 20180626, end: 20181017

REACTIONS (5)
  - Right ventricular failure [Recovered/Resolved]
  - Off label use [Unknown]
  - Hypotension [Recovered/Resolved]
  - Renal failure [Recovered/Resolved]
  - Renal failure [Recovered/Resolved]

NARRATIVE: CASE EVENT DATE: 20180625
